FAERS Safety Report 4892142-1 (Version None)
Quarter: 2006Q1

REPORT INFORMATION
  Report Type: 
  Country: None (occurrence: None)
  Receive Date: 20060126
  Receipt Date: 20050119
  Transmission Date: 20060701
  Serious: Yes (Death)
  Sender: FDA-Public Use
  Company Number: US-BRISTOL-MYERS SQUIBB COMPANY-12829297

PATIENT
  Age: 87 Year
  Sex: Male

DRUGS (11)
  1. ENKAID [Suspect]
     Indication: HEART RATE DECREASED
     Route: 048
     Dates: start: 19970101, end: 20050101
  2. LIPITOR [Concomitant]
  3. LANOXIN [Concomitant]
  4. NITROGLYCERIN [Concomitant]
  5. LASIX [Concomitant]
  6. COUMADIN [Concomitant]
  7. NORVASC [Concomitant]
  8. POTASSIUM CHLORIDE [Concomitant]
  9. VASOTEC [Concomitant]
  10. PRILOSEC [Concomitant]
  11. NEURONTIN [Concomitant]

REACTIONS (1)
  - DEATH [None]
